FAERS Safety Report 13460855 (Version 3)
Quarter: 2017Q3

REPORT INFORMATION
  Report Type: Spontaneous
  Country: US (occurrence: US)
  Receive Date: 20170420
  Receipt Date: 20170906
  Transmission Date: 20171127
  Serious: No
  Sender: FDA-Public Use
  Company Number: US-BIO PRODUCTS LABORATORY LTD-1065556

PATIENT
  Age: 36 Year
  Sex: Female
  Weight: 82 kg

DRUGS (4)
  1. GAMMAPLEX [Suspect]
     Active Substance: HUMAN IMMUNOGLOBULIN G
     Indication: CHRONIC INFLAMMATORY DEMYELINATING POLYRADICULONEUROPATHY
     Route: 042
     Dates: start: 20170311, end: 20170409
  2. TRAMADOL. [Concomitant]
     Active Substance: TRAMADOL
  3. LYRICA [Concomitant]
     Active Substance: PREGABALIN
  4. FENTANYL. [Concomitant]
     Active Substance: FENTANYL

REACTIONS (5)
  - Migraine [Recovered/Resolved]
  - Rash maculo-papular [Recovered/Resolved]
  - Nausea [Recovered/Resolved]
  - Headache [Recovered/Resolved]
  - Off label use [Recovered/Resolved]
